FAERS Safety Report 23907896 (Version 1)
Quarter: 2024Q2

REPORT INFORMATION
  Report Type: Spontaneous
  Country: US (occurrence: US)
  Receive Date: 20240528
  Receipt Date: 20240528
  Transmission Date: 20240716
  Serious: No
  Sender: FDA-Public Use
  Company Number: US-GLENMARK PHARMACEUTICALS-2024GMK088927

PATIENT

DRUGS (1)
  1. CLOBETASOL PROPIONATE [Suspect]
     Active Substance: CLOBETASOL PROPIONATE
     Indication: Psoriasis
     Dosage: UNK, APPLIED DROPS ONCE A WEEK FOR TWO WEEKS, PAUSED FOR A WEEK, AND PLANNED TO REPEAT THIS CYCLE
     Route: 061

REACTIONS (2)
  - Product use issue [Unknown]
  - Expired product administered [Unknown]
